FAERS Safety Report 7831591-6 (Version None)
Quarter: 2011Q4

REPORT INFORMATION
  Report Type: 
  Country: None (occurrence: None)
  Receive Date: 20111019
  Receipt Date: 20111006
  Transmission Date: 20120403
  Serious: Yes (Death, Life-Threatening)
  Sender: FDA-Public Use
  Company Number: 1000024321

PATIENT
  Age: 79 Year
  Sex: Female
  Weight: 80 kg

DRUGS (2)
  1. CITALOPRAM HYDROBROMIDE [Suspect]
     Indication: DEPRESSION
     Dosage: 20 MG (20 MG, 1 IN 1 D), ORAL
     Route: 048
  2. PANTOPRAZOLE [Suspect]
     Dosage: 40 MG (40 MG, 1 IN 1 D), ORAL
     Route: 048

REACTIONS (4)
  - SUDDEN DEATH [None]
  - TORSADE DE POINTES [None]
  - CARDIAC ARREST [None]
  - HYPOXIC-ISCHAEMIC ENCEPHALOPATHY [None]
